FAERS Safety Report 7792396-8 (Version None)
Quarter: 2011Q4

REPORT INFORMATION
  Report Type: 
  Country: None (occurrence: None)
  Receive Date: 20111003
  Receipt Date: 20110922
  Transmission Date: 20120403
  Serious: Yes (Other)
  Sender: FDA-Public Use
  Company Number: US-ASTRAZENECA-2011SE48170

PATIENT
  Age: 50 Year
  Sex: Female

DRUGS (3)
  1. NEXIUM [Suspect]
     Route: 048
  2. PRILOSEC [Suspect]
     Route: 048
  3. 20 MEDICATIONS [Concomitant]

REACTIONS (15)
  - DRY EYE [None]
  - GLAUCOMA [None]
  - DIABETES MELLITUS [None]
  - INSOMNIA [None]
  - GASTROOESOPHAGEAL REFLUX DISEASE [None]
  - PAIN [None]
  - MENOPAUSE [None]
  - WRONG DRUG ADMINISTERED [None]
  - ROAD TRAFFIC ACCIDENT [None]
  - IMPAIRED WORK ABILITY [None]
  - BACK PAIN [None]
  - PAIN IN EXTREMITY [None]
  - BLOOD GLUCOSE DECREASED [None]
  - SLEEP APNOEA SYNDROME [None]
  - RESPIRATORY DISORDER [None]
